FAERS Safety Report 15494660 (Version 5)
Quarter: 2018Q4

REPORT INFORMATION
  Report Type: Report from Study
  Country: AR (occurrence: AR)
  Receive Date: 20181012
  Receipt Date: 20181207
  Transmission Date: 20190205
  Serious: Yes (Death, Hospitalization)
  Sender: FDA-Public Use
  Company Number: PHHY2018AR120742

PATIENT
  Age: 54 Year
  Sex: Female

DRUGS (2)
  1. ENTRESTO [Suspect]
     Active Substance: SACUBITRIL\VALSARTAN
     Indication: CARDIAC FAILURE
     Dosage: 0.5 DF (50 MG), QD
     Route: 065
     Dates: start: 20180702
  2. ENTRESTO [Suspect]
     Active Substance: SACUBITRIL\VALSARTAN
     Indication: CARDIAC FAILURE

REACTIONS (13)
  - Cardiac disorder [Unknown]
  - Post procedural complication [Not Recovered/Not Resolved]
  - Gait inability [Recovering/Resolving]
  - Varicose vein [Unknown]
  - Cardiac failure [Unknown]
  - Fluid retention [Recovering/Resolving]
  - Wrong technique in product usage process [Not Recovered/Not Resolved]
  - Prescribed underdose [Not Recovered/Not Resolved]
  - Impaired healing [Recovering/Resolving]
  - Product prescribing error [Not Recovered/Not Resolved]
  - Pain in extremity [Recovering/Resolving]
  - Death [Fatal]
  - Blister [Unknown]

NARRATIVE: CASE EVENT DATE: 201810
